FAERS Safety Report 25199147 (Version 1)
Quarter: 2025Q2

REPORT INFORMATION
  Report Type: Report from Study
  Country: FR (occurrence: FR)
  Receive Date: 20250415
  Receipt Date: 20250415
  Transmission Date: 20250717
  Serious: Yes (Hospitalization, Other)
  Sender: Norvium Bioscience
  Company Number: FR-Norvium Bioscience LLC-080019

PATIENT
  Age: 24 Year
  Sex: Male

DRUGS (3)
  1. PREGABALIN [Suspect]
     Active Substance: PREGABALIN
     Indication: Product used for unknown indication
  2. GABAPENTIN [Suspect]
     Active Substance: GABAPENTIN
     Indication: Drug use disorder
     Dosage: HIGH DOSE
  3. GABAPENTIN [Suspect]
     Active Substance: GABAPENTIN
     Indication: Drug use disorder

REACTIONS (5)
  - Emotional distress [Unknown]
  - Drug dependence [Unknown]
  - Toxicity to various agents [Unknown]
  - Withdrawal syndrome [Unknown]
  - Drug use disorder [Not Recovered/Not Resolved]
